FAERS Safety Report 15941315 (Version 4)
Quarter: 2019Q3

REPORT INFORMATION
  Report Type: Spontaneous
  Country: US (occurrence: US)
  Receive Date: 20190208
  Receipt Date: 20190930
  Transmission Date: 20191004
  Serious: Yes (Other)
  Sender: FDA-Public Use
  Company Number: US-ASTRAZENECA-2018SF21968

PATIENT
  Sex: Male

DRUGS (17)
  1. CARDIZEM [Concomitant]
     Active Substance: DILTIAZEM HYDROCHLORIDE
  2. GABAPENTIN. [Concomitant]
     Active Substance: GABAPENTIN
  3. PREDNISONE. [Concomitant]
     Active Substance: PREDNISONE
  4. TRAMADOL. [Concomitant]
     Active Substance: TRAMADOL
  5. PREVACID [Suspect]
     Active Substance: LANSOPRAZOLE
     Route: 065
     Dates: start: 20040101, end: 20040101
  6. MYCOPHENOLATE [Concomitant]
     Active Substance: MYCOPHENOLIC ACID
  7. PRAVASTATIN. [Concomitant]
     Active Substance: PRAVASTATIN
  8. CARVEDILOL. [Concomitant]
     Active Substance: CARVEDILOL
  9. PRILOSEC [Suspect]
     Active Substance: OMEPRAZOLE MAGNESIUM
     Route: 048
     Dates: start: 20040101, end: 20040101
  10. RAPAFLO [Concomitant]
     Active Substance: SILODOSIN
  11. SIROLIMUS. [Concomitant]
     Active Substance: SIROLIMUS
  12. ALPRAZOLAM. [Concomitant]
     Active Substance: ALPRAZOLAM
  13. ASPIRIN. [Concomitant]
     Active Substance: ASPIRIN
  14. CLONIDINE. [Concomitant]
     Active Substance: CLONIDINE
  15. LISINOPRIL. [Concomitant]
     Active Substance: LISINOPRIL
  16. DICLOXACILLIN [Concomitant]
     Active Substance: DICLOXACILLIN
  17. MONTELUKAST [Concomitant]
     Active Substance: MONTELUKAST SODIUM

REACTIONS (5)
  - Acute kidney injury [Unknown]
  - Renal injury [Unknown]
  - End stage renal disease [Unknown]
  - Chronic kidney disease [Unknown]
  - Nephrogenic anaemia [Unknown]
